FAERS Safety Report 8608321-3 (Version None)
Quarter: 2012Q3

REPORT INFORMATION
  Report Type: 
  Country: None (occurrence: None)
  Receive Date: 20120821
  Receipt Date: 20120813
  Transmission Date: 20120928
  Serious: No
  Sender: FDA-Public Use
  Company Number: US-JNJFOC-20120806206

PATIENT
  Age: 49 Year
  Sex: Male

DRUGS (1)
  1. STELARA [Suspect]
     Indication: PSORIASIS
     Dosage: INITIATED 2 YEARS AGO
     Route: 058

REACTIONS (1)
  - PROSTATIC SPECIFIC ANTIGEN INCREASED [None]
